FAERS Safety Report 6329405-9 (Version None)
Quarter: 2009Q3

REPORT INFORMATION
  Report Type: 
  Country: None (occurrence: None)
  Receive Date: 20090826
  Receipt Date: 20090819
  Transmission Date: 20100115
  Serious: Yes (Other)
  Sender: FDA-Public Use
  Company Number: A0803094A

PATIENT
  Sex: Female

DRUGS (3)
  1. IMITREX [Suspect]
     Indication: DRUG USE FOR UNKNOWN INDICATION
  2. IMITREX [Suspect]
     Route: 045
  3. LEXAPRO [Concomitant]

REACTIONS (2)
  - EYE DISORDER [None]
  - MACULAR DEGENERATION [None]
